FAERS Safety Report 19083883 (Version 1)
Quarter: 2021Q2

REPORT INFORMATION
  Report Type: Spontaneous
  Country: US (occurrence: US)
  Receive Date: 20210401
  Receipt Date: 20210401
  Transmission Date: 20210717
  Serious: Yes (Hospitalization, Other)
  Sender: FDA-Public Use
  Company Number: US-CATALYST PHARMACEUTICALS, INC-2021CAT00116

PATIENT
  Age: 65 Year
  Sex: Female
  Weight: 68.03 kg

DRUGS (4)
  1. ASPIRIN. [Suspect]
     Active Substance: ASPIRIN
     Dosage: UNK
     Dates: end: 202103
  2. UNSPECIFIED LONG?TERM ANTIBIOTICS [Concomitant]
  3. MEMANTINE. [Concomitant]
     Active Substance: MEMANTINE
     Dosage: UNK, 2X/DAY
  4. FIRDAPSE [Suspect]
     Active Substance: AMIFAMPRIDINE PHOSPHATE
     Indication: MYASTHENIC SYNDROME
     Dosage: 20 MG, 4X/DAY
     Dates: start: 2020

REACTIONS (4)
  - Anaemia [Unknown]
  - Asthenia [Unknown]
  - Myasthenic syndrome [Not Recovered/Not Resolved]
  - Gastric ulcer haemorrhage [Unknown]

NARRATIVE: CASE EVENT DATE: 202103
